FAERS Safety Report 7307251-7 (Version None)
Quarter: 2011Q1

REPORT INFORMATION
  Report Type: 
  Country: None (occurrence: None)
  Receive Date: 20110223
  Receipt Date: 20110218
  Transmission Date: 20110831
  Serious: Yes (Other)
  Sender: FDA-Public Use
  Company Number: US-PFIZER INC-2011038399

PATIENT
  Sex: Male

DRUGS (1)
  1. CHANTIX [Suspect]
     Dosage: UNK
     Dates: start: 20100501

REACTIONS (9)
  - LOSS OF CONSCIOUSNESS [None]
  - ANXIETY [None]
  - ANGER [None]
  - HALLUCINATION, VISUAL [None]
  - HALLUCINATION, AUDITORY [None]
  - SUICIDAL IDEATION [None]
  - PSYCHOTIC DISORDER [None]
  - DEPRESSION [None]
  - PARANOIA [None]
